FAERS Safety Report 5210254-X (Version None)
Quarter: 2007Q1

REPORT INFORMATION
  Report Type: 
  Country: None (occurrence: None)
  Receive Date: 20070112
  Receipt Date: 20070112
  Transmission Date: 20070707
  Serious: Yes (Death)
  Sender: FDA-Public Use
  Company Number: None

PATIENT
  Age: 81 Year
  Sex: Female
  Weight: 55.3388 kg

DRUGS (2)
  1. AVASTIN [Suspect]
     Indication: CHOROIDAL NEOVASCULARISATION
     Dosage: 1.25/0.05ML  / LEFT EYE      INTRAOCULAR
     Route: 031
     Dates: start: 20060427, end: 20060427
  2. AVASTIN [Suspect]
     Indication: CHOROIDAL NEOVASCULARISATION
     Dosage: 1.25/0.05ML / RIGHT EYE      INTRAOCULA
     Route: 031
     Dates: start: 20060511, end: 20060511

REACTIONS (2)
  - CARDIAC FAILURE CONGESTIVE [None]
  - HEADACHE [None]
